FAERS Safety Report 14649345 (Version 1)
Quarter: 2018Q1

REPORT INFORMATION
  Report Type: Spontaneous
  Country: US (occurrence: US)
  Receive Date: 20180316
  Receipt Date: 20180316
  Transmission Date: 20180509
  Serious: No
  Sender: FDA-Public Use
  Company Number: US-TARO-2017TAR00980

PATIENT
  Age: 73 Year
  Sex: Female
  Weight: 62.59 kg

DRUGS (1)
  1. CICLOPIROX SHAMPOO 1% [Suspect]
     Active Substance: CICLOPIROX
     Indication: DERMATITIS
     Dosage: UNK, AS DIRECTED
     Route: 061
     Dates: start: 2017, end: 2017

REACTIONS (5)
  - Dermatitis [Recovered/Resolved]
  - Cough [Recovered/Resolved]
  - Rash generalised [Recovered/Resolved]
  - Off label use [Recovered/Resolved]
  - Insomnia [Recovered/Resolved]

NARRATIVE: CASE EVENT DATE: 2017
